FAERS Safety Report 16264425 (Version 4)
Quarter: 2021Q4

REPORT INFORMATION
  Report Type: Spontaneous
  Country: US (occurrence: US)
  Receive Date: 20190502
  Receipt Date: 20211203
  Transmission Date: 20220303
  Serious: No
  Sender: FDA-Public Use
  Company Number: US-PFIZER INC-2018080799

PATIENT
  Age: 9 Year
  Sex: Male
  Weight: 30.8 kg

DRUGS (3)
  1. SOMATROPIN [Suspect]
     Active Substance: SOMATROPIN
     Dosage: 0.8 MG, DAILY
     Dates: start: 2017
  2. SOMATROPIN [Suspect]
     Active Substance: SOMATROPIN
     Dosage: 5 MG
     Dates: start: 201809
  3. SOMATROPIN [Suspect]
     Active Substance: SOMATROPIN
     Dosage: 1.4 MG, DAILY

REACTIONS (4)
  - Rash [Recovered/Resolved with Sequelae]
  - Swelling [Unknown]
  - Asthenia [Unknown]
  - Tremor [Unknown]

NARRATIVE: CASE EVENT DATE: 20190416
